FAERS Safety Report 9614599 (Version 2)
Quarter: 2013Q4

REPORT INFORMATION
  Report Type: Spontaneous
  Country: FR (occurrence: FR)
  Receive Date: 20131011
  Receipt Date: 20131106
  Transmission Date: 20140711
  Serious: Yes (Hospitalization, Other)
  Sender: FDA-Public Use
  Company Number: FR-009507513-1310FRA004874

PATIENT
  Age: 41 Year
  Sex: Female
  Weight: 87 kg

DRUGS (3)
  1. XELEVIA [Suspect]
     Indication: DIABETES MELLITUS
     Dosage: 100 MG, QD
     Route: 048
     Dates: start: 20130316, end: 20130826
  2. METFORMIN [Concomitant]
     Dosage: UNK
     Dates: start: 2008
  3. LANZOPRAZOL [Concomitant]
     Dosage: UNK
     Dates: start: 20130628, end: 20130728

REACTIONS (1)
  - Eosinophilic pneumonia [Recovering/Resolving]
